FAERS Safety Report 17106849 (Version 2)
Quarter: 2020Q4

REPORT INFORMATION
  Report Type: Spontaneous
  Country: US (occurrence: US)
  Receive Date: 20191203
  Receipt Date: 20201202
  Transmission Date: 20210113
  Serious: No
  Sender: FDA-Public Use
  Company Number: US-CHIESI USA, INC.-US-2019CHI000362

PATIENT

DRUGS (2)
  1. BETHKIS [Suspect]
     Active Substance: TOBRAMYCIN
     Indication: LUNG DISORDER
     Dosage: 300 MG/ML, Q12H
     Route: 055
     Dates: start: 20171206, end: 20190725
  2. BETHKIS [Suspect]
     Active Substance: TOBRAMYCIN
     Indication: PNEUMONIA

REACTIONS (3)
  - Pulmonary pain [Unknown]
  - Dysphonia [Unknown]
  - Product use in unapproved indication [Recovered/Resolved]

NARRATIVE: CASE EVENT DATE: 20171206
